FAERS Safety Report 14413191 (Version 2)
Quarter: 2018Q1

REPORT INFORMATION
  Report Type: Spontaneous
  Country: US (occurrence: US)
  Receive Date: 20180119
  Receipt Date: 20180124
  Transmission Date: 20180509
  Serious: Yes (Death, Hospitalization, Other)
  Sender: FDA-Public Use
  Company Number: US-PFIZER INC-2018025491

PATIENT
  Age: 18 Year
  Sex: Female

DRUGS (1)
  1. EPIPEN [Suspect]
     Active Substance: EPINEPHRINE
     Indication: ANAPHYLACTIC REACTION
     Dosage: UNK

REACTIONS (5)
  - Expired product administered [Fatal]
  - Cardiac arrest [Fatal]
  - Brain injury [Fatal]
  - Dyspnoea [Unknown]
  - Consciousness fluctuating [Unknown]
